FAERS Safety Report 12480279 (Version 1)
Quarter: 2016Q2

REPORT INFORMATION
  Report Type: Spontaneous
  Country: None (occurrence: GB)
  Receive Date: 20160620
  Receipt Date: 20160620
  Transmission Date: 20160815
  Serious: Yes (Other)
  Sender: FDA-Public Use
  Company Number: GB-MERCK KGAA-1054013

PATIENT

DRUGS (1)
  1. NOVOTHYROX [Suspect]
     Active Substance: LEVOTHYROXINE SODIUM

REACTIONS (8)
  - Chest pain [None]
  - Musculoskeletal pain [None]
  - Chest discomfort [None]
  - Pain in extremity [None]
  - Pain [None]
  - Neck pain [None]
  - Drug interaction [None]
  - Dyspnoea [None]
